FAERS Safety Report 6843482-8 (Version None)
Quarter: 2010Q3

REPORT INFORMATION
  Report Type: 
  Country: None (occurrence: None)
  Receive Date: 20100715
  Receipt Date: 20100713
  Transmission Date: 20110219
  Serious: Yes (Other)
  Sender: FDA-Public Use
  Company Number: US-BAYER-200930534NA

PATIENT
  Age: 46 Year
  Sex: Male
  Weight: 62 kg

DRUGS (12)
  1. BETASERON [Suspect]
     Indication: MULTIPLE SCLEROSIS
     Dosage: TOTAL DAILY DOSE: 2 MIU
     Route: 058
     Dates: start: 20090401
  2. BETASERON [Suspect]
     Dosage: TOTAL DAILY DOSE: 8 MIU
     Route: 058
  3. BETASERON [Suspect]
     Dosage: TOTAL DAILY DOSE: 6 MIU
     Route: 058
  4. NEURONTIN [Concomitant]
     Dosage: TOTAL DAILY DOSE: 900 MG
  5. ASPIRIN [Concomitant]
     Dosage: TOTAL DAILY DOSE: 81 MG
     Route: 048
  6. CYCLOBENZAPRINE [Concomitant]
     Dosage: TOTAL DAILY DOSE: 10 MG
     Route: 048
  7. CYMBALTA [Concomitant]
     Dosage: TOTAL DAILY DOSE: 30 MG
     Route: 048
  8. FLUOXETINE HCL [Concomitant]
     Dosage: TOTAL DAILY DOSE: 20 MG
     Route: 048
  9. NORVASC [Concomitant]
     Dosage: TOTAL DAILY DOSE: 2.5 MG
     Route: 048
  10. NORVASC [Concomitant]
     Dosage: TOTAL DAILY DOSE: 10 MG
     Route: 048
  11. NORVASC [Concomitant]
     Dosage: TOTAL DAILY DOSE: 5 MG
     Route: 048
  12. PLAVIX [Concomitant]
     Dosage: TOTAL DAILY DOSE: 75 MG
     Route: 048

REACTIONS (13)
  - AFFECT LABILITY [None]
  - COORDINATION ABNORMAL [None]
  - CRYING [None]
  - DEPRESSION [None]
  - DISTURBANCE IN ATTENTION [None]
  - DIZZINESS [None]
  - HEAD DISCOMFORT [None]
  - INJECTION SITE PAIN [None]
  - INJECTION SITE REACTION [None]
  - MEMORY IMPAIRMENT [None]
  - NIPPLE PAIN [None]
  - SUICIDAL IDEATION [None]
  - TENSION [None]
